FAERS Safety Report 5320744-7 (Version None)
Quarter: 2007Q2

REPORT INFORMATION
  Report Type: 
  Country: None (occurrence: None)
  Receive Date: 20070509
  Receipt Date: 20070502
  Transmission Date: 20071010
  Serious: Yes (Death)
  Sender: FDA-Public Use
  Company Number: BG-SHR-BG-2007-015750

PATIENT
  Age: 73 Year
  Sex: Female

DRUGS (2)
  1. FLUDARABINE PHOSPHATE [Suspect]
     Route: 042
     Dates: start: 20060918, end: 20070206
  2. CAMPATH [Suspect]
     Route: 042
     Dates: start: 20060918, end: 20070206

REACTIONS (1)
  - SUDDEN DEATH [None]
